FAERS Safety Report 26209016 (Version 1)
Quarter: 2025Q4

REPORT INFORMATION
  Report Type: Spontaneous
  Country: US (occurrence: None)
  Receive Date: 20251229
  Receipt Date: 20251229
  Transmission Date: 20260119
  Serious: No
  Sender: FDA-CTU
  Company Number: None

PATIENT
  Sex: Male

DRUGS (11)
  1. VYNDAMAX [Suspect]
     Active Substance: TAFAMIDIS
     Indication: Atrial fibrillation
     Dosage: TAKE 1 CAPSULE BY MOUTH IN THE MORNING
     Route: 048
     Dates: start: 20250117
  2. AMIODARONE [Concomitant]
     Active Substance: AMIODARONE
  3. AMVUTTRA SOL 25/0.5ML [Concomitant]
  4. ATORVASTATIN [Concomitant]
     Active Substance: ATORVASTATIN
  5. ELIOUIS TAB 5MG [Concomitant]
  6. ENTRESTO [Concomitant]
     Active Substance: SACUBITRIL\VALSARTAN
  7. FINASTERIDE [Concomitant]
     Active Substance: FINASTERIDE
  8. JARDIANCE [Concomitant]
     Active Substance: EMPAGLIFLOZIN
  9. KLOR-CON 10 TAB 10MEQ ER [Concomitant]
  10. LASIX TAB 40MG [Concomitant]
  11. MAGNESIUM TAB 400MG [Concomitant]

REACTIONS (1)
  - Surgery [None]
